FAERS Safety Report 9053474 (Version 1)
Quarter: 2013Q1

REPORT INFORMATION
  Report Type: Spontaneous
  Country: US (occurrence: None)
  Receive Date: 20130117
  Receipt Date: 20130117
  Transmission Date: 20140127
  Serious: Yes (Life-Threatening)
  Sender: FDA-Public Use
  Company Number: NPIL/SEV/H/2013/47

PATIENT
  Sex: Female

DRUGS (5)
  1. SEVOFLURANE [Suspect]
     Indication: ANAESTHESIA
     Route: 055
  2. FUROSEMIDE [Concomitant]
  3. ETOMIDATE [Concomitant]
  4. FENTANYL [Concomitant]
  5. VECURONIUM [Concomitant]

REACTIONS (3)
  - Cyanosis [None]
  - Oxygen saturation decreased [None]
  - Bradycardia [None]
